FAERS Safety Report 20145471 (Version 1)
Quarter: 2021Q4

REPORT INFORMATION
  Report Type: Spontaneous
  Country: JP (occurrence: JP)
  Receive Date: 20211203
  Receipt Date: 20211203
  Transmission Date: 20220303
  Serious: Yes (Other)
  Sender: FDA-Public Use
  Company Number: JP-PFIZER INC-202101651702

PATIENT

DRUGS (3)
  1. METHOTREXATE [Suspect]
     Active Substance: METHOTREXATE
  2. LEUCOVORIN [Suspect]
     Active Substance: LEUCOVORIN
     Dosage: 60 MG, 8 TIMES
  3. MEYLON [Concomitant]
     Active Substance: SODIUM BICARBONATE

REACTIONS (3)
  - Drug level increased [Unknown]
  - Pleural effusion [Unknown]
  - Blood sodium increased [Unknown]
